FAERS Safety Report 4311135-6 (Version None)
Quarter: 2004Q1

REPORT INFORMATION
  Report Type: 
  Country: None (occurrence: None)
  Receive Date: 20040302
  Receipt Date: 20040216
  Transmission Date: 20041129
  Serious: Yes (Hospitalization)
  Sender: FDA-Public Use
  Company Number: 1538

PATIENT
  Age: 15 Year
  Sex: Female

DRUGS (1)
  1. AVINZA [Suspect]
     Dates: start: 20040201, end: 20040201

REACTIONS (4)
  - ALCOHOL USE [None]
  - COMA [None]
  - OVERDOSE [None]
  - SELF-MEDICATION [None]
